FAERS Safety Report 21962343 (Version 1)
Quarter: 2023Q1

REPORT INFORMATION
  Report Type: Other
  Country: None (occurrence: IR)
  Receive Date: 20230207
  Receipt Date: 20230207
  Transmission Date: 20230417
  Serious: Yes (Hospitalization, Other)
  Sender: FDA-Public Use
  Company Number: IR-Spectra Medical Devices, LLC-2137607

PATIENT
  Age: 7 Day
  Sex: Female
  Weight: 1 kg

DRUGS (4)
  1. LIDOCAINE HYDROCHLORIDE ANHYDROUS [Suspect]
     Active Substance: LIDOCAINE HYDROCHLORIDE ANHYDROUS
     Indication: Product used for unknown indication
     Route: 065
  2. NITROGLYCERIN [Concomitant]
     Active Substance: NITROGLYCERIN
     Route: 065
  3. HEPARIN [Concomitant]
     Active Substance: HEPARIN SODIUM
     Route: 065
  4. KETAMINE [Concomitant]
     Active Substance: KETAMINE
     Route: 065

REACTIONS (3)
  - Horner^s syndrome [Recovered/Resolved]
  - Conjunctival hyperaemia [Recovered/Resolved]
  - Flushing [Recovered/Resolved]
